FAERS Safety Report 10129704 (Version 1)
Quarter: 2014Q2

REPORT INFORMATION
  Report Type: Spontaneous
  Country: DE (occurrence: None)
  Receive Date: 20140424
  Receipt Date: 20140424
  Transmission Date: 20141212
  Serious: Yes (Other)
  Sender: FDA-Public Use
  Company Number: 2014-19367

PATIENT
  Age: 83 Year
  Sex: Female

DRUGS (1)
  1. EYLEA (AFLIBERCEPT) INJECTION)AFLIBERCEPT) [Suspect]
     Indication: AGE-RELATED MACULAR DEGENERATION
     Dosage: UNK, 1 IN 6 WEEKS, INTRAOCULAR
     Route: 031
     Dates: start: 201210

REACTIONS (3)
  - Iris haemorrhage [None]
  - Conjunctival haemorrhage [None]
  - Inappropriate schedule of drug administration [None]
